APPROVED DRUG PRODUCT: BETHANECHOL CHLORIDE
Active Ingredient: BETHANECHOL CHLORIDE
Strength: 50MG
Dosage Form/Route: TABLET;ORAL
Application: A040677 | Product #001
Applicant: LANNETT CO INC
Approved: Mar 27, 2008 | RLD: No | RS: No | Type: DISCN